FAERS Safety Report 7861766-1 (Version None)
Quarter: 2011Q4

REPORT INFORMATION
  Report Type: 
  Country: None (occurrence: None)
  Receive Date: 20111027
  Receipt Date: 20101115
  Transmission Date: 20120403
  Serious: Yes (Other)
  Sender: FDA-Public Use
  Company Number: US-AMGEN-USASP2010005188

PATIENT
  Age: 50 Year
  Sex: Female

DRUGS (1)
  1. ENBREL [Suspect]
     Dosage: UNK
     Dates: start: 20101001, end: 20101101

REACTIONS (1)
  - INJECTION SITE REACTION [None]
